FAERS Safety Report 6616713-7 (Version None)
Quarter: 2010Q1

REPORT INFORMATION
  Report Type: 
  Country: None (occurrence: None)
  Receive Date: 20100305
  Receipt Date: 20100224
  Transmission Date: 20100710
  Serious: Yes (Hospitalization, Other)
  Sender: FDA-Public Use
  Company Number: CA-ABBOTT-10P-028-0628900-00

PATIENT
  Sex: Female
  Weight: 66.284 kg

DRUGS (5)
  1. HUMIRA [Suspect]
     Indication: CROHN'S DISEASE
     Route: 058
     Dates: start: 20100201
  2. HUMIRA [Suspect]
     Route: 058
  3. EFFEXOR [Concomitant]
     Indication: DEPRESSION
     Dosage: 150 MG X 1 TABLET AND 75 MG X 1 TABLET
  4. MARVELONE [Concomitant]
     Indication: CONTRACEPTION
  5. NOVO-TRAZODONE [Concomitant]
     Indication: INSOMNIA

REACTIONS (8)
  - ABDOMINAL DISTENSION [None]
  - ABDOMINAL PAIN [None]
  - DEHYDRATION [None]
  - DIARRHOEA [None]
  - GASTROENTERITIS VIRAL [None]
  - GASTROINTESTINAL INFLAMMATION [None]
  - MOBILITY DECREASED [None]
  - VOMITING [None]
